FAERS Safety Report 10244775 (Version 2)
Quarter: 2014Q2

REPORT INFORMATION
  Report Type: Report from Study
  Country: BD (occurrence: BD)
  Receive Date: 20140618
  Receipt Date: 20140618
  Transmission Date: 20141212
  Serious: Yes (Death)
  Sender: FDA-Public Use
  Company Number: PHHY2013BD039879

PATIENT
  Age: 45 Year
  Sex: Female
  Weight: 28 kg

DRUGS (1)
  1. ACLASTA [Suspect]
     Indication: OSTEOPOROSIS
     Dosage: UNK UKN, ONCE YEARLY
     Route: 042
     Dates: start: 20120914

REACTIONS (6)
  - Hepatic cancer [Fatal]
  - Abdominal pain [Fatal]
  - Weight decreased [Fatal]
  - Pyrexia [Fatal]
  - Malaise [Unknown]
  - Drug ineffective [Unknown]
